FAERS Safety Report 21936592 (Version 2)
Quarter: 2023Q1

REPORT INFORMATION
  Report Type: Spontaneous
  Country: US (occurrence: US)
  Receive Date: 20230201
  Receipt Date: 20230220
  Transmission Date: 20230417
  Serious: No
  Sender: FDA-Public Use
  Company Number: US-AMGEN-USASP2023011827

PATIENT
  Age: 78 Year
  Sex: Female
  Weight: 90.249 kg

DRUGS (1)
  1. REPATHA [Suspect]
     Active Substance: EVOLOCUMAB
     Indication: Product used for unknown indication
     Dosage: 140 MILLIGRAM
     Route: 065
     Dates: start: 20201123

REACTIONS (2)
  - Accidental exposure to product [Unknown]
  - Product administration error [Unknown]

NARRATIVE: CASE EVENT DATE: 20230108
